FAERS Safety Report 20966146 (Version 1)
Quarter: 2022Q2

REPORT INFORMATION
  Report Type: Spontaneous
  Country: GB (occurrence: GB)
  Receive Date: 20220616
  Receipt Date: 20220616
  Transmission Date: 20220720
  Serious: Yes (Death, Other)
  Sender: FDA-Public Use
  Company Number: GB-GILEAD-2022-0585348

PATIENT
  Age: 55 Year
  Sex: Male

DRUGS (6)
  1. AMPHOTERICIN B [Suspect]
     Active Substance: AMPHOTERICIN B
     Indication: Product used for unknown indication
     Route: 042
  2. VORICONAZOLE [Concomitant]
     Active Substance: VORICONAZOLE
     Indication: Product used for unknown indication
     Dosage: UNK UNK, UNKNOWN FREQ.
     Route: 065
  3. TACROLIMUS [Concomitant]
     Active Substance: TACROLIMUS
     Indication: Product used for unknown indication
     Dosage: UNK UNK, UNKNOWN FREQ.
     Route: 065
  4. LINEZOLID [Concomitant]
     Active Substance: LINEZOLID
     Indication: Product used for unknown indication
     Dosage: UNK UNK, UNKNOWN FREQ.
     Route: 065
  5. CEFTRIAXONE [Concomitant]
     Active Substance: CEFTRIAXONE
     Indication: Product used for unknown indication
     Dosage: UNK UNK, UNKNOWN FREQ.
     Route: 065
  6. GENTAMICIN [Concomitant]
     Active Substance: GENTAMICIN
     Indication: Product used for unknown indication
     Dosage: UNK UNK, UNKNOWN FREQ.
     Route: 065

REACTIONS (3)
  - Haemophagocytic lymphohistiocytosis [Fatal]
  - Bacterial infection [Fatal]
  - Lung consolidation [Unknown]
